FAERS Safety Report 5583544-9 (Version None)
Quarter: 2007Q4

REPORT INFORMATION
  Report Type: 
  Country: None (occurrence: None)
  Receive Date: 20071231
  Receipt Date: 20071220
  Transmission Date: 20080405
  Serious: Yes (Death)
  Sender: FDA-Public Use
  Company Number: 20074464

PATIENT
  Age: 69 Year
  Sex: Female

DRUGS (1)
  1. LIORESAL [Suspect]
     Indication: MUSCLE SPASTICITY
     Dosage: 1226.3 MCG, DAILY, INTRATHECAL
     Route: 037

REACTIONS (2)
  - FAILURE TO THRIVE [None]
  - PNEUMONIA ASPIRATION [None]
